FAERS Safety Report 8817860 (Version 2)
Quarter: 2013Q1

REPORT INFORMATION
  Report Type: Report from Study
  Country: US (occurrence: US)
  Receive Date: 20121004
  Receipt Date: 20130108
  Transmission Date: 20140127
  Serious: Yes (Hospitalization)
  Sender: FDA-Public Use
  Company Number: US-ROCHE-1139079

PATIENT
  Age: 58 Year
  Sex: Male
  Weight: 110 kg

DRUGS (12)
  1. VEMURAFENIB [Suspect]
     Indication: MALIGNANT MELANOMA
     Dosage: DATE OF LAST DOSE PRIOR TO SAE: 21/SEP/2012
     Route: 048
     Dates: start: 20120418
  2. INVESTIGATIONAL PRODUCT [Suspect]
     Indication: MALIGNANT MELANOMA
     Dosage: DATE OF LAST DOSE PRIOR TO SAE: 21/APR/2012
     Route: 048
     Dates: start: 20120418
  3. NORVASC [Concomitant]
     Route: 065
     Dates: start: 2007
  4. COREG [Concomitant]
     Route: 065
     Dates: start: 2007
  5. HYZAAR [Concomitant]
     Route: 065
     Dates: start: 2007
  6. VYTORIN [Concomitant]
     Dosage: 10-20 MG DAILY
     Route: 065
     Dates: start: 2007
  7. ALLOPURINOL [Concomitant]
     Route: 065
     Dates: start: 2008
  8. KLOR-CON [Concomitant]
     Route: 065
     Dates: start: 201112
  9. JALYN [Concomitant]
     Route: 065
     Dates: start: 201112
  10. NEURONTIN [Concomitant]
     Dosage: 100/300 MG DAILY
     Route: 065
     Dates: start: 20120301
  11. VITAMIN D2 [Concomitant]
     Dosage: 1 TAB DAILY
     Route: 065
     Dates: start: 2011
  12. CLARITIN [Concomitant]
     Route: 065
     Dates: start: 2008

REACTIONS (1)
  - Chest pain [Recovered/Resolved]
